FAERS Safety Report 23104465 (Version 1)
Quarter: 2023Q4

REPORT INFORMATION
  Report Type: Report from Study
  Country: CA (occurrence: CA)
  Receive Date: 20231025
  Receipt Date: 20231025
  Transmission Date: 20240110
  Serious: Yes (Other)
  Sender: FDA-Public Use
  Company Number: None

PATIENT
  Sex: Female

DRUGS (15)
  1. MYCOPHENOLIC ACID [Suspect]
     Active Substance: MYCOPHENOLIC ACID
     Indication: Product used for unknown indication
     Route: 065
  2. ASPIRIN [Concomitant]
     Active Substance: ASPIRIN
     Route: 065
  3. AZATHIOPRINE [Concomitant]
     Active Substance: AZATHIOPRINE
  4. CENTAURIUM ERYTHRAEA [Concomitant]
     Active Substance: CENTAURIUM ERYTHRAEA
  5. DILTIAZEM [Concomitant]
     Active Substance: DILTIAZEM
  6. MAGNESIUM OXIDE [Concomitant]
     Active Substance: MAGNESIUM OXIDE
  7. OMEGA 3 [Concomitant]
     Active Substance: CAPSAICIN
  8. FERRIC POLYSACCHARIDE COMPLEX [Concomitant]
     Active Substance: FERRIC POLYSACCHARIDE COMPLEX
  9. PREDNISONE [Concomitant]
     Active Substance: PREDNISONE
  10. PROGESTERONE [Concomitant]
     Active Substance: PROGESTERONE
  11. RIZATRIPTAN [Concomitant]
     Active Substance: RIZATRIPTAN
  12. SELENIUM [Concomitant]
     Active Substance: SELENIUM
  13. SERTRALINE [Concomitant]
     Active Substance: SERTRALINE HYDROCHLORIDE
  14. SYNTHROID [Concomitant]
     Active Substance: LEVOTHYROXINE SODIUM
  15. VITAMIN D3 [Concomitant]
     Active Substance: CHOLECALCIFEROL

REACTIONS (2)
  - Uveitis [Unknown]
  - Drug hypersensitivity [Unknown]
